FAERS Safety Report 17162868 (Version 1)
Quarter: 2019Q4

REPORT INFORMATION
  Report Type: Spontaneous
  Country: US (occurrence: US)
  Receive Date: 20191216
  Receipt Date: 20191216
  Transmission Date: 20200122
  Serious: Yes (Hospitalization)
  Sender: FDA-Public Use
  Company Number: None

PATIENT
  Age: 44 Year
  Sex: Male

DRUGS (4)
  1. DIAZEPAM 10 MG [Concomitant]
     Active Substance: DIAZEPAM
     Dates: start: 20191105
  2. HUMIRA [Suspect]
     Active Substance: ADALIMUMAB
     Indication: ANKYLOSING SPONDYLITIS
     Dosage: ?          OTHER FREQUENCY:EVERY OTHER WEEK;?
     Route: 058
     Dates: start: 20181106
  3. FUROSEMIDE TAB 20 MG [Concomitant]
     Dates: start: 20190702
  4. DICLOFENAC TAB 75 MG DR [Concomitant]
     Dates: start: 20190430

REACTIONS (2)
  - Cholecystectomy [None]
  - Intentional dose omission [None]

NARRATIVE: CASE EVENT DATE: 20191216
